APPROVED DRUG PRODUCT: AMINOCAPROIC ACID
Active Ingredient: AMINOCAPROIC ACID
Strength: 250MG/ML
Dosage Form/Route: INJECTABLE;INJECTION
Application: A071192 | Product #001 | TE Code: AP
Applicant: LUITPOLD PHARMACEUTICALS INC
Approved: Dec 1, 1987 | RLD: No | RS: No | Type: RX